FAERS Safety Report 9785266 (Version 2)
Quarter: 2014Q1

REPORT INFORMATION
  Report Type: Report from Study
  Country: NO (occurrence: NO)
  Receive Date: 20131223
  Receipt Date: 20140328
  Transmission Date: 20141002
  Serious: Yes (Hospitalization)
  Sender: FDA-Public Use
  Company Number: NO-JNJFOC-20131212947

PATIENT
  Age: 84 Year
  Sex: Female

DRUGS (9)
  1. XARELTO [Suspect]
     Indication: ATRIAL FIBRILLATION
     Route: 048
     Dates: start: 20130706
  2. XARELTO [Suspect]
     Indication: CEREBROVASCULAR ACCIDENT PROPHYLAXIS
     Route: 048
     Dates: start: 20130706
  3. DIURAL (FUROSEMIDE) [Concomitant]
     Route: 065
  4. ASA [Concomitant]
     Indication: CEREBROVASCULAR ACCIDENT PROPHYLAXIS
     Route: 065
     Dates: start: 20130802
  5. LIPITOR [Concomitant]
     Route: 065
  6. NIFEREX [Concomitant]
     Route: 065
  7. KALEORID [Concomitant]
     Route: 065
  8. COZAAR [Concomitant]
     Route: 065
  9. EMCONCOR [Concomitant]
     Route: 065

REACTIONS (1)
  - Anaemia [Recovering/Resolving]
